FAERS Safety Report 7734857-3 (Version None)
Quarter: 2011Q3

REPORT INFORMATION
  Report Type: 
  Country: None (occurrence: None)
  Receive Date: 20110907
  Receipt Date: 20110829
  Transmission Date: 20111222
  Serious: Yes (Life-Threatening, Hospitalization)
  Sender: FDA-Public Use
  Company Number: DE-NOVOPROD-329730

PATIENT

DRUGS (1)
  1. VICTOZA [Suspect]
     Indication: DIABETES MELLITUS
     Dosage: UNK
     Route: 058
     Dates: start: 20100603, end: 20100701

REACTIONS (7)
  - CEREBRAL HAEMORRHAGE [None]
  - PARAESTHESIA [None]
  - FAECAL INCONTINENCE [None]
  - HEMIPLEGIA [None]
  - APHASIA [None]
  - URINARY INCONTINENCE [None]
  - NAUSEA [None]
